FAERS Safety Report 18221723 (Version 1)
Quarter: 2020Q3

REPORT INFORMATION
  Report Type: Spontaneous
  Country: US (occurrence: US)
  Receive Date: 20200902
  Receipt Date: 20200902
  Transmission Date: 20201103
  Serious: No
  Sender: FDA-Public Use
  Company Number: US-DECIPHERA PHARMACEUTICALS LLC-2020-US-000293

PATIENT
  Weight: 81.19 kg

DRUGS (2)
  1. QINLOCK [Suspect]
     Active Substance: RIPRETINIB
     Dosage: 100 MILLIGRAM, QD, 2 TABLETS
     Route: 048
  2. QINLOCK [Suspect]
     Active Substance: RIPRETINIB
     Indication: NEOPLASM MALIGNANT
     Dosage: 150 MILLIGRAM, QD, 3 TABLETS
     Route: 048

REACTIONS (6)
  - Dizziness [Unknown]
  - Fatigue [Unknown]
  - Rash [Unknown]
  - Pain in extremity [Unknown]
  - Gait disturbance [Unknown]
  - Diarrhoea [Unknown]
